FAERS Safety Report 4711798-7 (Version None)
Quarter: 2005Q3

REPORT INFORMATION
  Report Type: 
  Country: None (occurrence: None)
  Receive Date: 20050712
  Receipt Date: 20050701
  Transmission Date: 20060218
  Serious: Yes (Other)
  Sender: FDA-Public Use
  Company Number: US-JNJFOC-20050603386

PATIENT
  Sex: Male

DRUGS (2)
  1. REMICADE [Suspect]
     Indication: UVEITIS
     Dosage: RECEIVING FOR OVER ONE YEAR
     Route: 042
  2. METHOTREXATE [Concomitant]

REACTIONS (3)
  - COUGH [None]
  - THYMUS DISORDER [None]
  - UVEITIS [None]
